FAERS Safety Report 11233086 (Version 1)
Quarter: 2015Q3

REPORT INFORMATION
  Report Type: Spontaneous
  Country: IT (occurrence: IT)
  Receive Date: 20150701
  Receipt Date: 20150701
  Transmission Date: 20151125
  Serious: Yes (Hospitalization, Other)
  Sender: FDA-Public Use
  Company Number: IT-GLAXOSMITHKLINE-IT2014GSK000138

PATIENT
  Sex: Female

DRUGS (2)
  1. VACCINE [Suspect]
     Active Substance: UNSPECIFIED INGREDIENT
     Indication: PROPHYLAXIS
     Dosage: UNK
     Dates: start: 2012
  2. RANITIDINE [Suspect]
     Active Substance: RANITIDINE\RANITIDINE HYDROCHLORIDE
     Indication: GASTROOESOPHAGEAL REFLUX DISEASE
     Dosage: UNK
     Route: 048
     Dates: start: 2012

REACTIONS (6)
  - Coma [Unknown]
  - Respiratory failure [Not Recovered/Not Resolved]
  - Mitochondrial encephalomyopathy [Unknown]
  - Device related infection [Unknown]
  - Abdominal rigidity [Unknown]
  - Seizure [Unknown]

NARRATIVE: CASE EVENT DATE: 2012
